FAERS Safety Report 5808199-7 (Version None)
Quarter: 2008Q3

REPORT INFORMATION
  Report Type: 
  Country: None (occurrence: None)
  Receive Date: 20080709
  Receipt Date: 20080630
  Transmission Date: 20090109
  Serious: Yes (Other)
  Sender: FDA-Public Use
  Company Number: CHPA2008US10889

PATIENT
  Sex: Male

DRUGS (1)
  1. BENEFIBER PLUS CALCIUM WITH WHEAT DEXTRIN (CALCIUM CARBONATE, WHEAT DE [Suspect]
     Dosage: 2 TSP, QD, ORAL
     Route: 048

REACTIONS (1)
  - NEPHRECTOMY [None]
